FAERS Safety Report 5921428-4 (Version None)
Quarter: 2008Q4

REPORT INFORMATION
  Report Type: 
  Country: None (occurrence: None)
  Receive Date: 20081014
  Receipt Date: 20081001
  Transmission Date: 20090506
  Serious: Yes (Hospitalization)
  Sender: FDA-Public Use
  Company Number: 2006BI000754

PATIENT
  Age: 45 Year
  Sex: Male
  Weight: 79.3795 kg

DRUGS (2)
  1. AVONEX [Suspect]
     Dosage: 30 UG;Q;IM, 30 UG;QW;IM
     Route: 030
     Dates: start: 20010101, end: 20030101
  2. AVONEX [Suspect]
     Dosage: 30 UG;Q;IM, 30 UG;QW;IM
     Route: 030
     Dates: start: 20030101

REACTIONS (1)
  - PROSTATE CANCER [None]
